FAERS Safety Report 7836456-1 (Version None)
Quarter: 2011Q4

REPORT INFORMATION
  Report Type: 
  Country: None (occurrence: None)
  Receive Date: 20111024
  Receipt Date: 20110516
  Transmission Date: 20120403
  Serious: No
  Sender: FDA-Public Use
  Company Number: US-ABBOTT-11P-163-0726363-00

PATIENT
  Sex: Female

DRUGS (5)
  1. UNKNOWN STERIODS [Concomitant]
     Indication: PRODUCT USED FOR UNKNOWN INDICATION
     Route: 048
  2. UNKNOWN ALLERGY MEDICATIONS [Concomitant]
     Indication: HYPERSENSITIVITY
  3. UNKNOWN BLOOD PRESSURE MEDICATION [Concomitant]
     Indication: HYPERTENSION
     Route: 048
  4. UNKNOWN ANTIDIABETICS [Concomitant]
     Indication: DIABETES MELLITUS
     Route: 048
  5. LUPRON DEPOT [Suspect]
     Indication: POSTMENOPAUSAL HAEMORRHAGE
     Route: 030
     Dates: start: 20110201

REACTIONS (2)
  - VAGINAL HAEMORRHAGE [None]
  - DRUG INEFFECTIVE [None]
